FAERS Safety Report 15360410 (Version 6)
Quarter: 2025Q4

REPORT INFORMATION
  Report Type: Spontaneous
  Country: US (occurrence: US)
  Receive Date: 20180907
  Receipt Date: 20251117
  Transmission Date: 20260117
  Serious: No
  Sender: PFIZER
  Company Number: US-PFIZER INC-2018360819

PATIENT
  Age: 66 Year
  Sex: Female
  Weight: 82 kg

DRUGS (8)
  1. IBRANCE [Suspect]
     Active Substance: PALBOCICLIB
     Indication: Breast cancer metastatic
     Dosage: 125 MG, CYCLIC (ONE CAPSULE BY MOUTH DAILY OF 3 WEEKS ON, ONE WEEK OFF.)
     Route: 048
     Dates: start: 201805, end: 20181231
  2. IBRANCE [Suspect]
     Active Substance: PALBOCICLIB
     Dosage: 100 MG
  3. LETROZOLE [Concomitant]
     Active Substance: LETROZOLE
     Indication: Breast cancer stage IV
     Dosage: 2.5 MG, 1X/DAY (ONE TABLET)
     Route: 048
     Dates: start: 201805
  4. METOPROLOL [Concomitant]
     Active Substance: METOPROLOL
     Indication: Blood pressure abnormal
     Dosage: 100 MG, DAILY (ONE TABLET)
     Route: 048
     Dates: start: 200905
  5. HYDROCHLOROTHIAZIDE [Concomitant]
     Active Substance: HYDROCHLOROTHIAZIDE
     Indication: Limb discomfort
     Dosage: 12.5 MG, DAILY (ONE TABLET )
     Route: 048
     Dates: start: 2009
  6. IBUPROFEN [Concomitant]
     Active Substance: IBUPROFEN
     Indication: Paraesthesia
     Dosage: UNK
  7. LEVOTHYROXINE [Concomitant]
     Active Substance: LEVOTHYROXINE
     Indication: Thyroid disorder
     Dosage: 200 UG, 1X/DAY (ONE TABLET)
     Route: 048
     Dates: start: 200812
  8. TRAMADOL [Concomitant]
     Active Substance: TRAMADOL
     Indication: Pain
     Dosage: 50 MG, AS NEEDED(ONE TABLET TWICE A DAY)

REACTIONS (2)
  - White blood cell count decreased [Recovering/Resolving]
  - Weight decreased [Unknown]

NARRATIVE: CASE EVENT DATE: 20180101
